FAERS Safety Report 6149527-5 (Version None)
Quarter: 2009Q2

REPORT INFORMATION
  Report Type: 
  Country: None (occurrence: None)
  Receive Date: 20090409
  Receipt Date: 20090403
  Transmission Date: 20091009
  Serious: Yes (Hospitalization)
  Sender: FDA-Public Use
  Company Number: JP-BAYER-200910858BYL

PATIENT
  Age: 53 Year
  Sex: Female
  Weight: 75 kg

DRUGS (13)
  1. FLUDARA [Suspect]
     Indication: FOLLICLE CENTRE LYMPHOMA, FOLLICULAR GRADE I, II, III STAGE I
     Dosage: TOTAL DAILY DOSE: 35 MG  UNIT DOSE: 50 MG
     Route: 042
     Dates: start: 20040621, end: 20040625
  2. FLUDARA [Suspect]
     Dosage: TOTAL DAILY DOSE: 35 MG  UNIT DOSE: 50 MG
     Route: 042
     Dates: start: 20040726, end: 20040730
  3. FLUDARA [Suspect]
     Dosage: TOTAL DAILY DOSE: 35 MG  UNIT DOSE: 50 MG
     Route: 042
     Dates: start: 20040823, end: 20040827
  4. FLUDARA [Suspect]
     Dosage: TOTAL DAILY DOSE: 35 MG  UNIT DOSE: 50 MG
     Route: 042
     Dates: start: 20041018, end: 20041022
  5. FLUDARA [Suspect]
     Dosage: TOTAL DAILY DOSE: 35 MG  UNIT DOSE: 50 MG
     Route: 042
     Dates: start: 20041122, end: 20041126
  6. FLUDARA [Suspect]
     Dosage: TOTAL DAILY DOSE: 35 MG  UNIT DOSE: 50 MG
     Route: 042
     Dates: start: 20040920, end: 20040924
  7. RITUXAN [Concomitant]
     Indication: FOLLICLE CENTRE LYMPHOMA, FOLLICULAR GRADE I, II, III STAGE I
     Dosage: AS USED: 600 MG
     Route: 041
     Dates: start: 20040616, end: 20040616
  8. RITUXAN [Concomitant]
     Dosage: AS USED: 600 MG
     Route: 041
     Dates: start: 20040619, end: 20040619
  9. RITUXAN [Concomitant]
     Dosage: AS USED: 600 MG
     Route: 041
     Dates: start: 20040723, end: 20040723
  10. RITUXAN [Concomitant]
     Dosage: AS USED: 600 MG
     Route: 041
     Dates: start: 20040917, end: 20040917
  11. RITUXAN [Concomitant]
     Dosage: AS USED: 600 MG
     Route: 041
     Dates: start: 20041119, end: 20041119
  12. RITUXAN [Concomitant]
     Dosage: AS USED: 600 MG
     Route: 041
     Dates: start: 20050120, end: 20050120
  13. RITUXAN [Concomitant]
     Dosage: AS USED: 600 MG
     Route: 041
     Dates: start: 20050127, end: 20050127

REACTIONS (1)
  - SARCOIDOSIS [None]
